FAERS Safety Report 8377765-X (Version None)
Quarter: 2012Q2

REPORT INFORMATION
  Report Type: 
  Country: None (occurrence: None)
  Receive Date: 20120522
  Receipt Date: 20120517
  Transmission Date: 20120825
  Serious: Yes (Hospitalization)
  Sender: FDA-Public Use
  Company Number: US-JNJFOC-20120511458

PATIENT
  Sex: Female
  Weight: 63.5 kg

DRUGS (3)
  1. PREDNISONE [Concomitant]
     Indication: SWELLING
     Route: 048
     Dates: start: 20120101
  2. SIMPONI [Suspect]
     Indication: RHEUMATOID ARTHRITIS
     Route: 058
     Dates: start: 20120301
  3. ACTIVELLE (ESTRADIOL AND NORETHINDRONE) [Concomitant]
     Indication: HORMONE REPLACEMENT THERAPY
     Route: 048
     Dates: start: 20070101

REACTIONS (6)
  - DRUG EFFECT DECREASED [None]
  - DRUG DOSE OMISSION [None]
  - NEPHROLITHIASIS [None]
  - DEVICE MALFUNCTION [None]
  - NERVOUSNESS [None]
  - ARTHRALGIA [None]
